FAERS Safety Report 8144989-6 (Version None)
Quarter: 2012Q1

REPORT INFORMATION
  Report Type: 
  Country: None (occurrence: None)
  Receive Date: 20120217
  Receipt Date: 20120205
  Transmission Date: 20120608
  Serious: Yes (Other)
  Sender: FDA-Public Use
  Company Number: CHPA2012US002677

PATIENT
  Sex: Female

DRUGS (1)
  1. EXCEDRIN (MIGRAINE) [Suspect]
     Dosage: UNK , UNK
     Route: 048

REACTIONS (5)
  - MUSCULOSKELETAL STIFFNESS [None]
  - PHOTOPSIA [None]
  - AMNESIA [None]
  - SEIZURE LIKE PHENOMENA [None]
  - MENTAL IMPAIRMENT [None]
